FAERS Safety Report 24572847 (Version 1)
Quarter: 2024Q4

REPORT INFORMATION
  Report Type: Spontaneous
  Country: CN (occurrence: None)
  Receive Date: 20241101
  Receipt Date: 20241101
  Transmission Date: 20250114
  Serious: No
  Sender: Public
  Company Number: None

PATIENT
  Age: 74 Year
  Sex: Female

DRUGS (4)
  1. OMEPRAZOLE [Suspect]
     Active Substance: OMEPRAZOLE
     Indication: Abdominal discomfort
     Dosage: FREQUENCY : DAILY;?
  2. POTASSIUM CITRATE [Concomitant]
     Active Substance: POTASSIUM CITRATE
  3. CALCIUM GLUCONATE [Concomitant]
     Active Substance: CALCIUM GLUCONATE
  4. SPIRONOLACTONE [Concomitant]
     Active Substance: SPIRONOLACTONE

REACTIONS (9)
  - Nausea [None]
  - Vomiting [None]
  - Delirium [None]
  - Hypokalaemia [None]
  - Hypomagnesaemia [None]
  - Hypoparathyroidism [None]
  - Vitamin D decreased [None]
  - Nystagmus [None]
  - Cerebellar syndrome [None]
